FAERS Safety Report 18104132 (Version 1)
Quarter: 2020Q3

REPORT INFORMATION
  Report Type: Spontaneous
  Country: US (occurrence: US)
  Receive Date: 20200801
  Receipt Date: 20200801
  Transmission Date: 20201103
  Serious: No
  Sender: FDA-Public Use
  Company Number: None

PATIENT
  Age: 59 Year
  Sex: Female
  Weight: 105.75 kg

DRUGS (5)
  1. PREGABALIN. [Concomitant]
     Active Substance: PREGABALIN
  2. VERAPAMIL [Concomitant]
     Active Substance: VERAPAMIL HYDROCHLORIDE
  3. DEPAKOTE [Concomitant]
     Active Substance: DIVALPROEX SODIUM
  4. EMGALITY [Suspect]
     Active Substance: GALCANEZUMAB-GNLM
     Indication: MIGRAINE
     Dosage: ?          OTHER ROUTE:AUTO?INJECTOR INTO ABDOMINAL FAT?
  5. SYNTHROID [Concomitant]
     Active Substance: LEVOTHYROXINE SODIUM

REACTIONS (4)
  - Weight increased [None]
  - Nightmare [None]
  - Constipation [None]
  - Abnormal dreams [None]

NARRATIVE: CASE EVENT DATE: 20200801
